FAERS Safety Report 15419771 (Version 3)
Quarter: 2018Q4

REPORT INFORMATION
  Report Type: Report from Study
  Country: JP (occurrence: JP)
  Receive Date: 20180924
  Receipt Date: 20181031
  Transmission Date: 20190204
  Serious: Yes (Hospitalization)
  Sender: FDA-Public Use
  Company Number: JP-ASTRAZENECA-2018SF22838

PATIENT
  Age: 22784 Day
  Sex: Male

DRUGS (31)
  1. DURVALUMAB. [Suspect]
     Active Substance: DURVALUMAB
     Indication: SMALL CELL LUNG CANCER
     Route: 042
     Dates: start: 20180322
  2. DURVALUMAB. [Suspect]
     Active Substance: DURVALUMAB
     Indication: SMALL CELL LUNG CANCER
     Route: 042
     Dates: start: 20180618, end: 20180618
  3. ETOPOSIDE. [Suspect]
     Active Substance: ETOPOSIDE
     Indication: SMALL CELL LUNG CANCER
     Dosage: 100 MG/M2
     Route: 065
     Dates: start: 20180531, end: 20180531
  4. ETOPOSIDE. [Suspect]
     Active Substance: ETOPOSIDE
     Indication: SMALL CELL LUNG CANCER
     Dosage: 100 MG/M2
     Route: 065
     Dates: start: 20180323, end: 20180323
  5. ETOPOSIDE. [Suspect]
     Active Substance: ETOPOSIDE
     Indication: SMALL CELL LUNG CANCER
     Dosage: 100 MG/M2
     Route: 065
     Dates: start: 20180417, end: 20180417
  6. FUROSEMIDE. [Concomitant]
     Active Substance: FUROSEMIDE
     Indication: RENAL FAILURE
     Route: 042
     Dates: start: 20180529
  7. DURVALUMAB. [Suspect]
     Active Substance: DURVALUMAB
     Indication: SMALL CELL LUNG CANCER
     Route: 042
     Dates: start: 20180416, end: 20180416
  8. CISPLATIN. [Suspect]
     Active Substance: CISPLATIN
     Indication: SMALL CELL LUNG CANCER
     Dosage: 80 MG/M2
     Route: 065
     Dates: start: 20180529, end: 20180529
  9. ETOPOSIDE. [Suspect]
     Active Substance: ETOPOSIDE
     Indication: SMALL CELL LUNG CANCER
     Dosage: 100 MG/M2
     Route: 065
     Dates: start: 20180507, end: 20180507
  10. ETOPOSIDE. [Suspect]
     Active Substance: ETOPOSIDE
     Indication: SMALL CELL LUNG CANCER
     Dosage: 100 MG/M2
     Route: 065
     Dates: start: 20180529, end: 20180529
  11. AMRUBICIN [Suspect]
     Active Substance: AMRUBICIN
     Route: 065
     Dates: start: 20180829
  12. MAINTATE [Concomitant]
     Active Substance: BISOPROLOL FUMARATE
     Indication: ARRHYTHMIA
     Route: 048
     Dates: start: 20180808
  13. ETOPOSIDE. [Suspect]
     Active Substance: ETOPOSIDE
     Indication: SMALL CELL LUNG CANCER
     Dosage: 100 MG/M2
     Route: 065
     Dates: start: 20180322, end: 20180322
  14. ETOPOSIDE. [Suspect]
     Active Substance: ETOPOSIDE
     Indication: SMALL CELL LUNG CANCER
     Dosage: 100 MG/M2
     Route: 065
     Dates: start: 20180418, end: 20180418
  15. AMRUBICIN [Suspect]
     Active Substance: AMRUBICIN
     Route: 065
     Dates: start: 20180731
  16. NEXIUM [Concomitant]
     Active Substance: ESOMEPRAZOLE MAGNESIUM
     Indication: GASTRITIS
     Route: 048
     Dates: start: 20180328
  17. WARFARIN [Concomitant]
     Active Substance: WARFARIN
     Indication: THROMBOSIS
     Route: 048
     Dates: start: 20180405
  18. METOCLOPRAMIDE. [Concomitant]
     Active Substance: METOCLOPRAMIDE
     Indication: DECREASED APPETITE
     Dosage: 5.0MG AS REQUIRED
     Route: 048
     Dates: start: 20180531
  19. CISPLATIN. [Suspect]
     Active Substance: CISPLATIN
     Indication: SMALL CELL LUNG CANCER
     Dosage: 80 MG/M2
     Route: 065
     Dates: start: 20180322, end: 20180322
  20. CISPLATIN. [Suspect]
     Active Substance: CISPLATIN
     Indication: SMALL CELL LUNG CANCER
     Dosage: 80 MG/M2
     Route: 065
     Dates: start: 20180416, end: 20180416
  21. ETOPOSIDE. [Suspect]
     Active Substance: ETOPOSIDE
     Indication: SMALL CELL LUNG CANCER
     Dosage: 100 MG/M2
     Route: 065
     Dates: start: 20180416, end: 20180416
  22. ETOPOSIDE. [Suspect]
     Active Substance: ETOPOSIDE
     Indication: SMALL CELL LUNG CANCER
     Dosage: 100 MG/M2
     Route: 065
     Dates: start: 20180509, end: 20180509
  23. CALONAL [Concomitant]
     Active Substance: ACETAMINOPHEN
     Indication: HEADACHE
     Dosage: 400.0MG AS REQUIRED
     Route: 048
     Dates: start: 20180529
  24. DURVALUMAB. [Suspect]
     Active Substance: DURVALUMAB
     Indication: SMALL CELL LUNG CANCER
     Route: 042
     Dates: start: 20180507, end: 20180507
  25. DURVALUMAB. [Suspect]
     Active Substance: DURVALUMAB
     Indication: SMALL CELL LUNG CANCER
     Route: 042
     Dates: start: 20180529, end: 20180529
  26. ETOPOSIDE. [Suspect]
     Active Substance: ETOPOSIDE
     Indication: SMALL CELL LUNG CANCER
     Dosage: 100 MG/M2
     Route: 065
     Dates: start: 20180324, end: 20180324
  27. ETOPOSIDE. [Suspect]
     Active Substance: ETOPOSIDE
     Indication: SMALL CELL LUNG CANCER
     Dosage: 100 MG/M2
     Route: 065
     Dates: start: 20180508, end: 20180508
  28. ETOPOSIDE. [Suspect]
     Active Substance: ETOPOSIDE
     Indication: SMALL CELL LUNG CANCER
     Dosage: 100 MG/M2
     Route: 065
     Dates: start: 20180530, end: 20180530
  29. MAGMITT [Concomitant]
     Active Substance: MAGNESIUM OXIDE
     Indication: CONSTIPATION
     Route: 048
     Dates: start: 20180404
  30. CISPLATIN. [Suspect]
     Active Substance: CISPLATIN
     Indication: SMALL CELL LUNG CANCER
     Dosage: 80 MG/M2
     Route: 065
     Dates: start: 20180507, end: 20180507
  31. LAMISIL [Concomitant]
     Active Substance: TERBINAFINE HYDROCHLORIDE
     Indication: TINEA PEDIS
     Route: 003
     Dates: start: 20180723

REACTIONS (1)
  - Thrombocytopenia [Recovering/Resolving]

NARRATIVE: CASE EVENT DATE: 20180919
